FAERS Safety Report 9310233 (Version 2)
Quarter: 2013Q2

REPORT INFORMATION
  Report Type: Spontaneous
  Country: FR (occurrence: FR)
  Receive Date: 20130527
  Receipt Date: 20130626
  Transmission Date: 20140414
  Serious: Yes (Hospitalization, Other)
  Sender: FDA-Public Use
  Company Number: PHHY2013FR052613

PATIENT
  Age: 85 Year
  Sex: Male
  Weight: 82 kg

DRUGS (3)
  1. ONBREZ [Suspect]
     Indication: CHRONIC OBSTRUCTIVE PULMONARY DISEASE
     Dosage: 150 UG, QD
     Dates: end: 20130518
  2. PERMIXON [Concomitant]
     Indication: PROSTATIC ADENOMA
     Dosage: 320 MG, QD
     Route: 048
  3. SILODYX [Concomitant]
     Indication: PROSTATIC ADENOMA
     Dosage: 8 MG, QD
     Route: 048

REACTIONS (5)
  - Syncope [Recovered/Resolved]
  - Malaise [Unknown]
  - Meningioma [Unknown]
  - Cerebral ischaemia [Unknown]
  - Wrong technique in drug usage process [Unknown]
